FAERS Safety Report 22108224 (Version 1)
Quarter: 2023Q1

REPORT INFORMATION
  Report Type: Spontaneous
  Country: US (occurrence: US)
  Receive Date: 20230317
  Receipt Date: 20230317
  Transmission Date: 20230417
  Serious: No
  Sender: FDA-Public Use
  Company Number: US-GLAXOSMITHKLINE-US2023039025

PATIENT
  Sex: Female

DRUGS (1)
  1. ZEJULA [Suspect]
     Active Substance: NIRAPARIB
     Indication: Ovarian cancer
     Dosage: 200 MG, QD
     Route: 048
     Dates: start: 20211001

REACTIONS (6)
  - Cough [Unknown]
  - Lung disorder [Unknown]
  - Taste disorder [Unknown]
  - Coronavirus infection [Unknown]
  - Upper-airway cough syndrome [Unknown]
  - Throat irritation [Unknown]
